FAERS Safety Report 6144568-6 (Version None)
Quarter: 2009Q2

REPORT INFORMATION
  Report Type: 
  Country: None (occurrence: None)
  Receive Date: 20090406
  Receipt Date: 20090402
  Transmission Date: 20091009
  Serious: Yes (Death)
  Sender: FDA-Public Use
  Company Number: PHHY2008AT15503

PATIENT
  Sex: Male
  Weight: 70 kg

DRUGS (2)
  1. EXELON [Suspect]
     Indication: DEMENTIA ALZHEIMER'S TYPE
     Dosage: 4.6 MG, QD
     Route: 062
     Dates: start: 20071121
  2. EXELON [Suspect]
     Dosage: 9.5 MG, QD
     Route: 062

REACTIONS (2)
  - PNEUMONIA [None]
  - THROMBOPHLEBITIS [None]
